FAERS Safety Report 12608830 (Version 1)
Quarter: 2016Q3

REPORT INFORMATION
  Report Type: Report from Study
  Country: US (occurrence: US)
  Receive Date: 20160730
  Receipt Date: 20160730
  Transmission Date: 20161109
  Serious: Yes (Hospitalization)
  Sender: FDA-Public Use
  Company Number: US-ABBVIE-16P-163-1688405-00

PATIENT
  Age: 55 Year
  Sex: Male
  Weight: 108.05 kg

DRUGS (2)
  1. VIEKIRA PAK [Suspect]
     Active Substance: DASABUVIR\OMBITASVIR\PARITAPREVIR\RITONAVIR
     Indication: HEPATITIS C
     Route: 048
     Dates: start: 20151218, end: 20160602
  2. RIBAVIRIN. [Suspect]
     Active Substance: RIBAVIRIN
     Indication: HEPATITIS C
     Route: 050
     Dates: start: 20151218, end: 20160602

REACTIONS (1)
  - Liver transplant rejection [Not Recovered/Not Resolved]

NARRATIVE: CASE EVENT DATE: 201606
